FAERS Safety Report 24995482 (Version 2)
Quarter: 2025Q1

REPORT INFORMATION
  Report Type: Spontaneous
  Country: JP (occurrence: JP)
  Receive Date: 20250221
  Receipt Date: 20250311
  Transmission Date: 20250409
  Serious: Yes (Other)
  Sender: RANBAXY
  Company Number: JP-SUN PHARMACEUTICAL INDUSTRIES LTD-2025R1-495486

PATIENT
  Age: 84 Year
  Sex: Male

DRUGS (2)
  1. ILUMYA [Suspect]
     Active Substance: TILDRAKIZUMAB-ASMN
     Indication: Psoriasis
     Route: 058
     Dates: start: 20210803, end: 20231014
  2. ILUMYA [Suspect]
     Active Substance: TILDRAKIZUMAB-ASMN
     Route: 058
     Dates: start: 20240520

REACTIONS (2)
  - Cholecystitis [Recovered/Resolved]
  - Cholelithiasis [Recovered/Resolved]

NARRATIVE: CASE EVENT DATE: 20231226
